FAERS Safety Report 8707797 (Version 2)
Quarter: 2013Q4

REPORT INFORMATION
  Report Type: Spontaneous
  Country: US (occurrence: US)
  Receive Date: 20120806
  Receipt Date: 20131101
  Transmission Date: 20140711
  Serious: No
  Sender: FDA-Public Use
  Company Number: US-009507513-1207USA011751

PATIENT
  Age: 59 Year
  Sex: Male

DRUGS (6)
  1. VICTRELIS [Suspect]
     Indication: HEPATITIS C
     Dosage: 800 MG, TID
     Route: 048
     Dates: start: 201205
  2. RIBASPHERE [Suspect]
  3. PEGASYS [Suspect]
  4. CLARINEX [Suspect]
  5. PRILOSEC [Suspect]
  6. DIOVAN [Concomitant]

REACTIONS (5)
  - Red blood cell count decreased [Unknown]
  - Anaemia [Unknown]
  - Dyspnoea [Unknown]
  - Fatigue [Unknown]
  - No therapeutic response [Unknown]
